FAERS Safety Report 8541236-8 (Version None)
Quarter: 2012Q3

REPORT INFORMATION
  Report Type: 
  Country: None (occurrence: None)
  Receive Date: 20120726
  Receipt Date: 20120718
  Transmission Date: 20120928
  Serious: No
  Sender: FDA-Public Use
  Company Number: JP-JNJFOC-20120710623

PATIENT
  Sex: Female
  Weight: 52 kg

DRUGS (1)
  1. SIMPONI [Suspect]
     Indication: RHEUMATOID ARTHRITIS
     Route: 058
     Dates: start: 20120418

REACTIONS (3)
  - CELL MARKER INCREASED [None]
  - MATRIX METALLOPROTEINASE-3 INCREASED [None]
  - C-REACTIVE PROTEIN INCREASED [None]
